FAERS Safety Report 11008303 (Version 1)
Quarter: 2015Q2

REPORT INFORMATION
  Report Type: Report from Study
  Country: US (occurrence: US)
  Receive Date: 20150410
  Receipt Date: 20150410
  Transmission Date: 20150821
  Serious: No
  Sender: FDA-Public Use
  Company Number: US-AMGEN-USASL2015034268

PATIENT
  Age: 67 Year
  Sex: Female

DRUGS (1)
  1. ENBREL [Suspect]
     Active Substance: ETANERCEPT
     Indication: PSORIATIC ARTHROPATHY
     Dosage: 50 MG, QWK
     Route: 065
     Dates: start: 20150122

REACTIONS (13)
  - Foot deformity [Not Recovered/Not Resolved]
  - Dehydration [Recovered/Resolved]
  - Condition aggravated [Recovered/Resolved]
  - Vomiting [Recovered/Resolved]
  - Arthralgia [Not Recovered/Not Resolved]
  - Mobility decreased [Recovered/Resolved]
  - Skin plaque [Not Recovered/Not Resolved]
  - Erythema [Not Recovered/Not Resolved]
  - Swelling [Not Recovered/Not Resolved]
  - Finger deformity [Not Recovered/Not Resolved]
  - Pruritus [Not Recovered/Not Resolved]
  - Anxiety [Recovered/Resolved]
  - Nausea [Recovered/Resolved]

NARRATIVE: CASE EVENT DATE: 2015
